FAERS Safety Report 7207333-4 (Version None)
Quarter: 2011Q1

REPORT INFORMATION
  Report Type: 
  Country: None (occurrence: None)
  Receive Date: 20110103
  Receipt Date: 20101229
  Transmission Date: 20110831
  Serious: No
  Sender: FDA-Public Use
  Company Number: US-TEVA-259601USA

PATIENT
  Sex: Female

DRUGS (13)
  1. LOTREL [Concomitant]
  2. BACLOFEN [Concomitant]
  3. ASTILIN SPRAY [Concomitant]
     Indication: HYPERSENSITIVITY
     Dates: start: 20080101
  4. MONTELUKAST [Concomitant]
  5. COPAXONE [Suspect]
     Indication: MULTIPLE SCLEROSIS
     Route: 058
     Dates: start: 20100801
  6. SIMVASTATIN [Concomitant]
  7. CLONAZEPAM [Concomitant]
  8. DULOXETINE HYDROCHLORIDE [Concomitant]
  9. MOMETASONE FUROATE [Concomitant]
     Indication: HYPERSENSITIVITY
     Dates: start: 20080101
  10. CONJUGATED ESTROGEN [Concomitant]
  11. DICLOFENAC [Concomitant]
  12. ALPRAZOLAM [Concomitant]
  13. BUSPIRONE [Concomitant]

REACTIONS (1)
  - RHINITIS ALLERGIC [None]
